FAERS Safety Report 6971019-1 (Version None)
Quarter: 2010Q3

REPORT INFORMATION
  Report Type: 
  Country: None (occurrence: None)
  Receive Date: 20100908
  Receipt Date: 20100828
  Transmission Date: 20110219
  Serious: Yes (Other)
  Sender: FDA-Public Use
  Company Number: BR-JNJFOC-20100900352

PATIENT
  Age: 32 Year
  Sex: Female
  Weight: 64 kg

DRUGS (3)
  1. REMICADE [Suspect]
     Indication: ANKYLOSING SPONDYLITIS
     Dosage: INITIAL DOSE AT WEEK 0, 2 + 6, THEN EVERY 8 WEEKS
     Route: 042
  2. REMICADE [Suspect]
     Dosage: INITIAL DOSE AT WEEK 0, 2 + 6, THEN EVERY 8 WEEKS
     Route: 042
  3. OMEPRAZOLE [Concomitant]
     Indication: ABDOMINAL PAIN UPPER

REACTIONS (1)
  - THYROID CANCER [None]
